FAERS Safety Report 18250237 (Version 1)
Quarter: 2020Q3

REPORT INFORMATION
  Report Type: Report from Study
  Country: US (occurrence: US)
  Receive Date: 20200909
  Receipt Date: 20200909
  Transmission Date: 20201103
  Serious: Yes (Hospitalization, Other)
  Sender: FDA-Public Use
  Company Number: US-JNJFOC-A-US2018-181724

PATIENT
  Age: 76 Year
  Sex: Female
  Weight: 55.33 kg

DRUGS (32)
  1. FLUZONE [Concomitant]
     Active Substance: INFLUENZA A VIRUS A/CALIFORNIA/7/2009 X-179A (H1N1) ANTIGEN (FORMALDEHYDE INACTIVATED)\INFLUENZA A VIRUS A/VICTORIA/210/2009 X-187 (H3N2) ANTIGEN (FORMALDEHYDE INACTIVATED)\INFLUENZA B VIRUS B/BRISBANE/60/2008 ANTIGEN (FORMALDEHYDE INACTIVATED)
  2. ZINC. [Concomitant]
     Active Substance: ZINC
     Dosage: 50 MG
  3. TUDORZA PRESSAIR [Concomitant]
     Active Substance: ACLIDINIUM BROMIDE
  4. OXYGEN. [Concomitant]
     Active Substance: OXYGEN
  5. OPSUMIT [Suspect]
     Active Substance: MACITENTAN
     Route: 048
     Dates: start: 20170517
  6. BROVANA [Suspect]
     Active Substance: ARFORMOTEROL TARTRATE
     Indication: PRODUCT USED FOR UNKNOWN INDICATION
     Route: 065
  7. CLONAZEPAM. [Concomitant]
     Active Substance: CLONAZEPAM
  8. WARFARIN [Concomitant]
     Active Substance: WARFARIN
  9. BENZONATATE. [Concomitant]
     Active Substance: BENZONATATE
     Dosage: 100 MG
  10. NITROFURANTOIN MONOHYDRATE MACROCRYSTALS [Concomitant]
     Active Substance: NITROFURANTOIN\NITROFURANTOIN MONOHYDRATE
     Dosage: 20 MG
  11. SYMBICORT [Concomitant]
     Active Substance: BUDESONIDE\FORMOTEROL FUMARATE DIHYDRATE
  12. AZELASTINE. [Concomitant]
     Active Substance: AZELASTINE HYDROCHLORIDE
  13. VITAMIN B12 [Concomitant]
     Active Substance: CYANOCOBALAMIN
  14. TREPROSTINIL. [Concomitant]
     Active Substance: TREPROSTINIL
  15. PROLIA [Concomitant]
     Active Substance: DENOSUMAB
     Dosage: 60 MG/ML
  16. OPSUMIT [Suspect]
     Active Substance: MACITENTAN
     Indication: PULMONARY ARTERIAL HYPERTENSION
     Dosage: 10 MG, QD
     Route: 048
     Dates: start: 201704
  17. PROAIR HFA [Concomitant]
     Active Substance: ALBUTEROL SULFATE
  18. DALIRESP [Concomitant]
     Active Substance: ROFLUMILAST
  19. ESCITALOPRAM [Concomitant]
     Active Substance: ESCITALOPRAM OXALATE
     Dosage: 10 MG
  20. FUROSEMIDE. [Concomitant]
     Active Substance: FUROSEMIDE
  21. ANORO ELLIPTA [Concomitant]
     Active Substance: UMECLIDINIUM BROMIDE\VILANTEROL TRIFENATATE
  22. ALBUTEROL SULFATE. [Concomitant]
     Active Substance: ALBUTEROL SULFATE
     Dosage: UNK
  23. GABAPENTIN. [Concomitant]
     Active Substance: GABAPENTIN
     Dosage: 100 MG
  24. SPIRONOLACTONE. [Concomitant]
     Active Substance: SPIRONOLACTONE
     Dosage: 25 MG
  25. BUDESONIDE. [Concomitant]
     Active Substance: BUDESONIDE
  26. DULOXETINE. [Concomitant]
     Active Substance: DULOXETINE
  27. VENLAFAXINE [Concomitant]
     Active Substance: VENLAFAXINE HYDROCHLORIDE
     Dosage: 37.5 MG
  28. ALENDRONATE [Concomitant]
     Active Substance: ALENDRONATE SODIUM
     Dosage: 70 MG
  29. ANORO [Concomitant]
     Active Substance: UMECLIDINIUM BROMIDE\VILANTEROL TRIFENATATE
  30. IPRATROPIUM/ALBUTEROL [Concomitant]
     Active Substance: ALBUTEROL\IPRATROPIUM
  31. ADCIRCA [Concomitant]
     Active Substance: TADALAFIL
  32. CYANOCOBALAMIN. [Concomitant]
     Active Substance: CYANOCOBALAMIN
     Dosage: 1000 MCG

REACTIONS (43)
  - Nasal congestion [Recovering/Resolving]
  - Productive cough [Recovering/Resolving]
  - Wheezing [Recovering/Resolving]
  - Mobility decreased [Not Recovered/Not Resolved]
  - Pulmonary hypertension [Not Recovered/Not Resolved]
  - Product dose omission issue [Not Recovered/Not Resolved]
  - Sleep disorder [Not Recovered/Not Resolved]
  - Deep vein thrombosis [Unknown]
  - Dyspnoea [Unknown]
  - Adverse drug reaction [Unknown]
  - Chronic obstructive pulmonary disease [Unknown]
  - Flatulence [Unknown]
  - Sinus disorder [Not Recovered/Not Resolved]
  - Diaphragmatic disorder [Not Recovered/Not Resolved]
  - Nasal operation [Unknown]
  - Pain in extremity [Not Recovered/Not Resolved]
  - Pulmonary arterial pressure abnormal [Unknown]
  - Dyspnoea [Recovered/Resolved]
  - Pulmonary embolism [Unknown]
  - Hepatic cirrhosis [Unknown]
  - Breath odour [Not Recovered/Not Resolved]
  - Dyspnoea exertional [Not Recovered/Not Resolved]
  - Pleural thickening [Not Recovered/Not Resolved]
  - Product dose omission issue [Recovered/Resolved]
  - Chronic respiratory failure [Not Recovered/Not Resolved]
  - Abdominal pain upper [Not Recovered/Not Resolved]
  - Back pain [Not Recovered/Not Resolved]
  - Insomnia [Not Recovered/Not Resolved]
  - Fatigue [Not Recovered/Not Resolved]
  - Breath sounds abnormal [Not Recovered/Not Resolved]
  - Headache [Not Recovered/Not Resolved]
  - Cough [Recovering/Resolving]
  - Nasal congestion [Not Recovered/Not Resolved]
  - Pneumonia [Recovered/Resolved]
  - Hypoxia [Not Recovered/Not Resolved]
  - Emphysema [Not Recovered/Not Resolved]
  - Oedema peripheral [Unknown]
  - Hepatomegaly [Not Recovered/Not Resolved]
  - Stress urinary incontinence [Recovered/Resolved]
  - Upper-airway cough syndrome [Not Recovered/Not Resolved]
  - Asthenia [Not Recovered/Not Resolved]
  - Portal vein thrombosis [Unknown]
  - Forced expiratory volume decreased [Unknown]

NARRATIVE: CASE EVENT DATE: 201712
